FAERS Safety Report 7513486-0 (Version None)
Quarter: 2011Q2

REPORT INFORMATION
  Report Type: 
  Country: None (occurrence: None)
  Receive Date: 20110531
  Receipt Date: 20110513
  Transmission Date: 20111010
  Serious: Yes (Other)
  Sender: FDA-Public Use
  Company Number: US-BAYER-201029034NA

PATIENT
  Age: 47 Year
  Sex: Female
  Weight: 83.447 kg

DRUGS (11)
  1. HYDROCODONE BITARTRATE [Concomitant]
     Indication: ANALGESIC THERAPY
     Route: 048
  2. TRICOR [Concomitant]
     Indication: BLOOD CHOLESTEROL INCREASED
     Dosage: 145 UNK, UNK
     Route: 048
  3. METFORMIN HCL [Concomitant]
     Indication: DIABETES MELLITUS
     Dosage: 500 MG, UNK
     Route: 048
  4. FLEXERIL [Concomitant]
     Dosage: 5 MG, UNK
     Route: 048
     Dates: start: 20060901
  5. DROSPIRENONE AND ETHINYL ESTRADIOL [Suspect]
     Indication: CONTRACEPTION
     Dosage: UNK
     Route: 048
     Dates: start: 20090101
  6. ZOCOR [Concomitant]
     Dosage: 40 MG, UNK
     Route: 048
  7. LORTAB [Concomitant]
     Dosage: 7.5 MG, UNK
     Route: 048
     Dates: start: 20060901
  8. YASMIN [Suspect]
     Indication: CONTRACEPTION
     Dosage: UNK
     Route: 048
     Dates: start: 20050101, end: 20080101
  9. YAZ [Suspect]
     Indication: CONTRACEPTION
     Dosage: UNK
     Route: 048
     Dates: start: 20080101
  10. NEURONTIN [Concomitant]
     Dosage: 100 MG, UNK
     Route: 048
     Dates: start: 20060801
  11. LODINE [Concomitant]
     Dosage: 400 MG, UNK
     Route: 048
     Dates: start: 20060901

REACTIONS (7)
  - CHOLECYSTITIS CHRONIC [None]
  - ABDOMINAL PAIN [None]
  - GALLBLADDER CHOLESTEROLOSIS [None]
  - CHOLELITHIASIS [None]
  - NEPHROLITHIASIS [None]
  - DIARRHOEA [None]
  - NAUSEA [None]
